FAERS Safety Report 9552066 (Version 1)
Quarter: 2013Q3

REPORT INFORMATION
  Report Type: Spontaneous
  Country: US (occurrence: None)
  Receive Date: 20130724
  Receipt Date: 20130724
  Transmission Date: 20140515
  Serious: Yes (Hospitalization)
  Sender: FDA-Public Use
  Company Number: PHEH2013US003077

PATIENT
  Age: 87 Year
  Sex: Female

DRUGS (3)
  1. DIOVAN HCT [Suspect]
     Indication: HYPERTENSION
     Dosage: 1 DF(80MG VALS/ 12.5MG HCTT) DAILY, ORAL
     Route: 048
     Dates: start: 20080616, end: 20121110
  2. HYDROCHLOROTHIAZIDE [Suspect]
  3. CELEXA [Suspect]
     Indication: DEPRESSION
     Route: 048
     Dates: start: 20121101, end: 20121110

REACTIONS (6)
  - Hyponatraemia [None]
  - Hypoglycaemia [None]
  - Malaise [None]
  - Arrhythmia [None]
  - Decreased appetite [None]
  - Hypertension [None]
